FAERS Safety Report 12047148 (Version 1)
Quarter: 2016Q1

REPORT INFORMATION
  Report Type: Spontaneous
  Country: ZA (occurrence: ZA)
  Receive Date: 20160208
  Receipt Date: 20160208
  Transmission Date: 20160526
  Serious: Yes (Hospitalization)
  Sender: FDA-Public Use
  Company Number: ZA-PFIZER INC-2016065629

PATIENT
  Age: 84 Year
  Sex: Female

DRUGS (7)
  1. CARLOC [Concomitant]
     Active Substance: CARVEDILOL
     Dosage: UNK
  2. WARFARIN [Concomitant]
     Active Substance: WARFARIN
     Dosage: UNK
  3. LIPITOR [Concomitant]
     Active Substance: ATORVASTATIN CALCIUM
     Dosage: UNK
  4. ZITHROMAX [Suspect]
     Active Substance: AZITHROMYCIN DIHYDRATE
     Indication: OROPHARYNGEAL PAIN
     Dosage: 500 MG, FOR 3 DAYS
  5. LANOLIN. [Concomitant]
     Active Substance: LANOLIN
     Dosage: UNK
  6. PURESIS [Concomitant]
     Active Substance: FUROSEMIDE
     Dosage: UNK
  7. HYPNOR /00377801/ [Concomitant]
     Dosage: UNK

REACTIONS (2)
  - International normalised ratio increased [Unknown]
  - Purpura [Unknown]
